FAERS Safety Report 8123500-X (Version None)
Quarter: 2012Q1

REPORT INFORMATION
  Report Type: 
  Country: None (occurrence: None)
  Receive Date: 20120208
  Receipt Date: 20120131
  Transmission Date: 20120608
  Serious: Yes (Other)
  Sender: FDA-Public Use
  Company Number: PHHY2012BR008543

PATIENT
  Sex: Male

DRUGS (4)
  1. DIOVAN [Suspect]
     Dosage: 320 MG, DAILY
  2. DIOVAN [Suspect]
     Dosage: 160 MG, UNK
  3. FORMOTEROL FUMARATE [Suspect]
     Indication: BRONCHITIS
     Dosage: 2 DF(12 MCG), A DAY
  4. DIOVAN [Suspect]
     Indication: HYPERTENSION
     Dosage: 80 MG, UNK

REACTIONS (6)
  - PROSTATIC SPECIFIC ANTIGEN INCREASED [None]
  - BACK PAIN [None]
  - PROSTATE CANCER RECURRENT [None]
  - HAEMORRHAGIC STROKE [None]
  - BLOOD URINE PRESENT [None]
  - BRONCHITIS [None]
